FAERS Safety Report 25483939 (Version 2)
Quarter: 2025Q2

REPORT INFORMATION
  Report Type: Spontaneous
  Country: US (occurrence: US)
  Receive Date: 20250626
  Receipt Date: 20250630
  Transmission Date: 20250717
  Serious: Yes (Hospitalization, Other)
  Sender: PFIZER
  Company Number: US-PFIZER INC-202500091350

PATIENT
  Age: 60 Year
  Sex: Male

DRUGS (1)
  1. LORBRENA [Suspect]
     Active Substance: LORLATINIB
     Indication: Lung neoplasm malignant
     Dosage: 100 MG, 1X/DAY (TAKE 100 MG IN THE MORNING)
     Route: 048

REACTIONS (6)
  - Hallucination [Unknown]
  - Suicidal ideation [Unknown]
  - Pancreatitis [Unknown]
  - Electrolyte imbalance [Unknown]
  - Blood triglycerides increased [Unknown]
  - Mental impairment [Unknown]
